FAERS Safety Report 6173590-9 (Version None)
Quarter: 2009Q2

REPORT INFORMATION
  Report Type: 
  Country: None (occurrence: None)
  Receive Date: 20090429
  Receipt Date: 20090429
  Transmission Date: 20091009
  Serious: Yes (Hospitalization)
  Sender: FDA-Public Use
  Company Number: None

PATIENT
  Sex: Male

DRUGS (1)
  1. SORAFENIB [Suspect]
     Indication: RENAL CELL CARCINOMA
     Dosage: 800 MG BID PO
     Route: 048
     Dates: start: 20090105, end: 20090206

REACTIONS (26)
  - ANAEMIA [None]
  - AZOTAEMIA [None]
  - BLOOD CREATININE INCREASED [None]
  - CARDIAC ARREST [None]
  - CULTURE WOUND POSITIVE [None]
  - DEEP VEIN THROMBOSIS [None]
  - DIARRHOEA [None]
  - FALL [None]
  - GENERALISED OEDEMA [None]
  - HAEMOGLOBIN DECREASED [None]
  - HYPERDYNAMIC LEFT VENTRICLE [None]
  - MALIGNANT NEOPLASM PROGRESSION [None]
  - MUSCLE HAEMORRHAGE [None]
  - MUSCULAR WEAKNESS [None]
  - PAIN [None]
  - PAIN IN EXTREMITY [None]
  - PNEUMONIA [None]
  - PULMONARY CONGESTION [None]
  - PULMONARY OEDEMA [None]
  - RENAL CELL CARCINOMA [None]
  - RETROPERITONEAL HAEMORRHAGE [None]
  - SEPSIS [None]
  - SPINAL CORD COMPRESSION [None]
  - STAPHYLOCOCCAL INFECTION [None]
  - TACHYCARDIA [None]
  - URINARY TRACT INFECTION [None]
